FAERS Safety Report 10687300 (Version 1)
Quarter: 2014Q4

REPORT INFORMATION
  Report Type: Spontaneous
  Country: US (occurrence: None)
  Receive Date: 20141230
  Receipt Date: 20141230
  Transmission Date: 20150529
  Serious: Yes (Life-Threatening)
  Sender: FDA-Public Use
  Company Number: None

PATIENT
  Age: 43 Year
  Sex: Male
  Weight: 129.73 kg

DRUGS (5)
  1. CONTRAVE [Suspect]
     Active Substance: BUPROPION HYDROCHLORIDE\NALTREXONE HYDROCHLORIDE
     Indication: WEIGHT DECREASED
     Dosage: 1 PILL
     Route: 048
     Dates: start: 20141121, end: 20141201
  2. LISINOPRIL. [Concomitant]
     Active Substance: LISINOPRIL
  3. HUMULIN R-U500 [Concomitant]
  4. CPAP MACHINE [Concomitant]
  5. VERAPAMIL [Concomitant]
     Active Substance: VERAPAMIL HYDROCHLORIDE

REACTIONS (3)
  - Psychotic disorder [None]
  - Suicidal ideation [None]
  - Hallucination, visual [None]

NARRATIVE: CASE EVENT DATE: 20141201
